FAERS Safety Report 9629206 (Version 2)
Quarter: 2013Q4

REPORT INFORMATION
  Report Type: Report from Study
  Country: US (occurrence: US)
  Receive Date: 20131017
  Receipt Date: 20131205
  Transmission Date: 20140711
  Serious: Yes (Other)
  Sender: FDA-Public Use
  Company Number: US-ROCHE-1288309

PATIENT
  Age: 55 Year
  Sex: Female

DRUGS (8)
  1. AVASTIN [Suspect]
     Indication: BRONCHIAL CARCINOMA
     Route: 042
  2. AVASTIN [Suspect]
     Route: 042
  3. ZOMETA [Concomitant]
     Route: 042
  4. ONDANSETRON [Concomitant]
     Route: 042
  5. DECADRON [Concomitant]
     Route: 042
  6. ALIMTA [Concomitant]
     Route: 042
  7. HEPARIN FLUSH [Concomitant]
     Dosage: 500 UNITS
     Route: 040
  8. VITAMIN B12 [Concomitant]
     Route: 058

REACTIONS (17)
  - Pleural effusion [Unknown]
  - Local swelling [Unknown]
  - Metastases to bone [Unknown]
  - Discomfort [Unknown]
  - Pleuritic pain [Unknown]
  - Hyperthyroidism [Unknown]
  - Bone cancer [Unknown]
  - Neoplasm malignant [Unknown]
  - Anxiety [Unknown]
  - Nausea [Unknown]
  - Vomiting [Unknown]
  - Insomnia [Unknown]
  - Contusion [Unknown]
  - Neuropathy peripheral [Unknown]
  - Nervousness [Unknown]
  - Skin tightness [Unknown]
  - Protein urine present [Unknown]
